FAERS Safety Report 9208223 (Version 3)
Quarter: 2013Q2

REPORT INFORMATION
  Report Type: Report from Study
  Country: KR (occurrence: KR)
  Receive Date: 20130403
  Receipt Date: 20130510
  Transmission Date: 20140414
  Serious: Yes (Hospitalization)
  Sender: FDA-Public Use
  Company Number: KR-009507513-1302KOR012795

PATIENT
  Age: 58 Year
  Sex: Male
  Weight: 88.6 kg

DRUGS (22)
  1. BLINDED INSULIN [Suspect]
     Indication: TYPE 2 DIABETES MELLITUS
     Dosage: UNK
     Route: 048
     Dates: start: 20100604
  2. BLINDED METFORMIN [Suspect]
     Indication: TYPE 2 DIABETES MELLITUS
     Dosage: UNK
     Route: 048
     Dates: start: 20100604
  3. BLINDED PIOGLITAZONE HYDROCHLORIDE [Suspect]
     Indication: TYPE 2 DIABETES MELLITUS
     Dosage: UNK
     Route: 048
     Dates: start: 20100604
  4. BLINDED PLACEBO [Suspect]
     Indication: TYPE 2 DIABETES MELLITUS
     Dosage: UNK
     Route: 048
     Dates: start: 20100604
  5. BLINDED POST TRIAL THERAPY [Suspect]
     Indication: TYPE 2 DIABETES MELLITUS
     Dosage: UNK
     Route: 048
     Dates: start: 20100604
  6. BLINDED PRE TRIAL THERAPY [Suspect]
     Indication: TYPE 2 DIABETES MELLITUS
     Dosage: UNK
     Route: 048
     Dates: start: 20100604
  7. BLINDED SITAGLIPTIN PHOSPHATE [Suspect]
     Indication: TYPE 2 DIABETES MELLITUS
     Dosage: UNK
     Route: 048
     Dates: start: 20100604
  8. LACTULOSE [Suspect]
     Indication: GASTRIC NEOPLASM
     Dosage: UNK, ONCE
     Route: 048
     Dates: start: 20130219, end: 20130219
  9. COLYTE [Suspect]
     Indication: GASTRIC NEOPLASM
     Dosage: UNK, TID
     Route: 048
     Dates: start: 20130219, end: 20130219
  10. BISACODYL [Suspect]
     Indication: GASTRIC NEOPLASM
     Dosage: UNK, ONCE
     Route: 048
     Dates: start: 20130219, end: 20130219
  11. PLANTAGO SEED [Suspect]
     Indication: GASTRIC NEOPLASM
     Dosage: UNK, ONCE
     Route: 048
     Dates: start: 20130219, end: 20130219
  12. MOTILITONE [Suspect]
     Indication: GASTRIC NEOPLASM
     Dosage: UNK, TID
     Route: 048
     Dates: start: 20130222, end: 20130308
  13. OMEPRAZOLE [Suspect]
     Indication: GASTRIC NEOPLASM
     Dosage: UNK, ONCE
     Route: 048
     Dates: start: 20130222, end: 20130308
  14. [THERAPY UNSPECIFIED] [Suspect]
     Indication: GASTRIC NEOPLASM
     Dosage: UNK, TID
     Route: 048
     Dates: start: 20130222
  15. CLOPIDOGREL [Concomitant]
     Indication: PROPHYLAXIS
     Dosage: UNK
     Dates: start: 20080101
  16. TAMSULOSIN HYDROCHLORIDE [Concomitant]
     Indication: BENIGN PROSTATIC HYPERPLASIA
     Dosage: UNK
     Dates: start: 20100601
  17. PITAVASTATIN CALCIUM [Concomitant]
     Indication: HYPERLIPIDAEMIA
     Dosage: UNK
     Dates: start: 20100601
  18. CILNIDIPINE [Concomitant]
     Indication: HYPERTENSION
     Dosage: UNK
     Dates: start: 20080501
  19. METFORMIN [Concomitant]
     Indication: DIABETES MELLITUS
     Dosage: UNK
     Dates: start: 20080501
  20. CETRAXATE HYDROCHLORIDE [Concomitant]
     Indication: GASTRITIS
     Dosage: UNK
     Dates: start: 20080501
  21. PROPIVERINE [Concomitant]
     Indication: BENIGN PROSTATIC HYPERPLASIA
     Dosage: UNK
     Dates: start: 20100706
  22. PENTOXIFYLLINE [Concomitant]
     Indication: PROPHYLAXIS
     Dosage: UNK
     Dates: start: 20121120

REACTIONS (1)
  - Benign gastric neoplasm [Recovered/Resolved]
